FAERS Safety Report 13567153 (Version 1)
Quarter: 2017Q2

REPORT INFORMATION
  Report Type: Spontaneous
  Country: US (occurrence: US)
  Receive Date: 20170522
  Receipt Date: 20170522
  Transmission Date: 20170830
  Serious: No
  Sender: FDA-Public Use
  Company Number: US-TEVA-718322ACC

PATIENT
  Age: 80 Year
  Sex: Female
  Weight: 59 kg

DRUGS (1)
  1. CLONIDINE TDS [Suspect]
     Active Substance: CLONIDINE
     Dates: start: 20161118

REACTIONS (5)
  - Constipation [Unknown]
  - Drug ineffective [Unknown]
  - Insomnia [Unknown]
  - Nasal dryness [Unknown]
  - Dry mouth [Unknown]

NARRATIVE: CASE EVENT DATE: 20161118
